FAERS Safety Report 23091002 (Version 1)
Quarter: 2023Q4

REPORT INFORMATION
  Report Type: Spontaneous
  Country: US (occurrence: None)
  Receive Date: 20231018
  Receipt Date: 20231018
  Transmission Date: 20240109
  Serious: Yes (Other)
  Sender: FDA-Public Use
  Company Number: None

PATIENT
  Age: 34 Year
  Sex: Male
  Weight: 77.11 kg

DRUGS (3)
  1. PINK EYE RELIEF [Suspect]
     Active Substance: ACONITUM NAPELLUS\APIS MELLIFERA\EUPHRASIA STRICTA\SILVER NITRATE\SODIUM ARSENATE, DIBASIC, HEPTAHYD
     Dosage: FREQUENCY : AS NEEDED;?
     Route: 031
     Dates: start: 20230926, end: 20230927
  2. LAMOTRIGINE [Concomitant]
     Active Substance: LAMOTRIGINE
  3. Emtr/Tenofov [Concomitant]

REACTIONS (4)
  - Eye swelling [None]
  - Product barcode issue [None]
  - Impaired work ability [None]
  - Product label issue [None]

NARRATIVE: CASE EVENT DATE: 20230926
